FAERS Safety Report 15643675 (Version 1)
Quarter: 2018Q4

REPORT INFORMATION
  Report Type: Report from Study
  Country: US (occurrence: US)
  Receive Date: 20181121
  Receipt Date: 20181121
  Transmission Date: 20190205
  Serious: Yes (Hospitalization)
  Sender: FDA-Public Use
  Company Number: US-BAYER-2018-188771

PATIENT
  Age: 62 Year
  Sex: Female

DRUGS (1)
  1. NEXAVAR [Suspect]
     Active Substance: SORAFENIB
     Indication: CHOLANGIOCARCINOMA
     Dosage: 800 MG, QD
     Route: 048
     Dates: start: 20180912

REACTIONS (4)
  - Peritonitis [None]
  - Product use in unapproved indication [None]
  - Off label use [None]
  - Weight decreased [None]

NARRATIVE: CASE EVENT DATE: 20180912
